FAERS Safety Report 16340404 (Version 1)
Quarter: 2019Q2

REPORT INFORMATION
  Report Type: Spontaneous
  Country: GB (occurrence: GB)
  Receive Date: 20190522
  Receipt Date: 20190522
  Transmission Date: 20190711
  Serious: Yes (Hospitalization)
  Sender: FDA-Public Use
  Company Number: GB-DEXPHARM-20190370

PATIENT
  Age: 80 Year
  Sex: Female

DRUGS (8)
  1. MACROGOL [Concomitant]
     Active Substance: POLYETHYLENE GLYCOLS
     Dosage: AS NECESSARY
     Route: 048
  2. PARAFFIN WHITE SOFT [Concomitant]
     Dosage: AS NECESSARY
     Route: 061
  3. OMEPRAZOLE. [Suspect]
     Active Substance: OMEPRAZOLE
     Route: 048
     Dates: start: 20190116, end: 20190203
  4. LIQUID PARAFFIN [Concomitant]
     Dosage: AS NECESSARY
     Route: 061
  5. ESTRIOL [Concomitant]
     Active Substance: ESTRIOL
     Dosage: CREAM WITH APPLICATOR
     Route: 061
  6. PARACETAMOL [Concomitant]
     Active Substance: ACETAMINOPHEN
     Dosage: CREAM WITH APPLICATOR ; AS NECESSARY
     Route: 048
  7. RANITIDINE. [Concomitant]
     Active Substance: RANITIDINE
     Dates: start: 20190203
  8. RAMIPRIL. [Suspect]
     Active Substance: RAMIPRIL
     Route: 048
     Dates: start: 20181228, end: 20190208

REACTIONS (2)
  - Hyponatraemia [Recovered/Resolved]
  - Confusional state [Unknown]

NARRATIVE: CASE EVENT DATE: 20190207
